FAERS Safety Report 4764999-6 (Version None)
Quarter: 2005Q3

REPORT INFORMATION
  Report Type: 
  Country: None (occurrence: None)
  Receive Date: 20050909
  Receipt Date: 20050906
  Transmission Date: 20060218
  Serious: Yes (Other)
  Sender: FDA-Public Use
  Company Number: GB-SOLVAY-00205002867

PATIENT
  Age: 68 Year
  Sex: Male
  Weight: 64 kg

DRUGS (5)
  1. ASPIRIN [Concomitant]
     Indication: ILL-DEFINED DISORDER
     Dosage: DAILY DOSE:  UNKNOWN
     Route: 048
     Dates: end: 20030715
  2. COVERSYL [Suspect]
     Indication: CARDIAC OPERATION
     Dosage: DAILY DOSE: 2 MILLIGRAM(S)
     Route: 048
     Dates: start: 20050616
  3. SIMVASTATIN [Concomitant]
     Indication: ILL-DEFINED DISORDER
     Dosage: DAILY DOSE:  UNKNOWN
     Route: 048
  4. CLOPIDOGREL [Concomitant]
     Indication: ILL-DEFINED DISORDER
     Dosage: DAILY DOSE:  UNKNOWN
     Route: 065
  5. BENDROFLUMETHIAZIDE [Concomitant]
     Indication: ILL-DEFINED DISORDER
     Dosage: DAILY DOSE:  UNKNOWN
     Route: 065

REACTIONS (5)
  - CONFUSIONAL STATE [None]
  - EYE PRURITUS [None]
  - INFLAMMATION [None]
  - INSOMNIA [None]
  - WEIGHT DECREASED [None]
